FAERS Safety Report 16683485 (Version 1)
Quarter: 2019Q3

REPORT INFORMATION
  Report Type: Spontaneous
  Country: FR (occurrence: FR)
  Receive Date: 20190808
  Receipt Date: 20190808
  Transmission Date: 20191004
  Serious: Yes (Hospitalization)
  Sender: FDA-Public Use
  Company Number: FR-AXELLIA-002623

PATIENT
  Age: 64 Year
  Sex: Female
  Weight: 69 kg

DRUGS (9)
  1. BISOPROLOL [Concomitant]
     Active Substance: BISOPROLOL
     Route: 048
  2. DAPTOMYCIN. [Suspect]
     Active Substance: DAPTOMYCIN
     Indication: PNEUMONIA ASPIRATION
     Route: 041
     Dates: start: 20190516, end: 20190619
  3. CORDARONE [Concomitant]
     Active Substance: AMIODARONE HYDROCHLORIDE
     Dosage: STRENGTH: 200 MG, SCORED TABLET
     Route: 048
  4. OFLOXACIN. [Concomitant]
     Active Substance: OFLOXACIN
     Route: 041
     Dates: start: 20190516
  5. LERCAN [Concomitant]
     Active Substance: LERCANIDIPINE
     Dosage: STRENGTH: 10 MG, DIVISIBLE COATED TABLET
     Route: 048
  6. FLUDEX [Concomitant]
     Dosage: STRENGTH: 1.5 MG, EXTENDED-RELEASE FILM-COATED TABLET
     Route: 048
  7. CEFEPIME [Concomitant]
     Active Substance: CEFEPIME HYDROCHLORIDE
     Route: 041
     Dates: start: 20190512
  8. COVERSYL [Concomitant]
     Active Substance: PERINDOPRIL
     Dosage: STRENGTH: 5 MG, DIVISIBLE COATED TABLET
     Route: 048
  9. PREVISCAN [Concomitant]
     Dosage: STRENGTH: 20 MG, SCORED TABLET
     Route: 048

REACTIONS (2)
  - Off label use [Unknown]
  - Interstitial lung disease [Recovered/Resolved]

NARRATIVE: CASE EVENT DATE: 20190617
